FAERS Safety Report 6974308-X (Version None)
Quarter: 2010Q3

REPORT INFORMATION
  Report Type: 
  Country: None (occurrence: None)
  Receive Date: 20100909
  Receipt Date: 20100825
  Transmission Date: 20110219
  Serious: Yes (Other)
  Sender: FDA-Public Use
  Company Number: PHHY2010US58937

PATIENT

DRUGS (2)
  1. METYRAPONE [Suspect]
     Indication: CUSHING'S SYNDROME
     Dosage: 250 MG, DAILY
     Route: 064
  2. METYRAPONE [Suspect]
     Dosage: 250 MG, TID
     Route: 064

REACTIONS (3)
  - DRUG EXPOSURE DURING PREGNANCY [None]
  - FOETAL HEART RATE DECELERATION [None]
  - PREMATURE BABY [None]
